FAERS Safety Report 19252233 (Version 1)
Quarter: 2021Q2

REPORT INFORMATION
  Report Type: Spontaneous
  Country: US (occurrence: US)
  Receive Date: 20210512
  Receipt Date: 20210512
  Transmission Date: 20210717
  Serious: No
  Sender: FDA-Public Use
  Company Number: None

PATIENT
  Age: 19 Year
  Sex: Female
  Weight: 44 kg

DRUGS (2)
  1. TALTZ [Suspect]
     Active Substance: IXEKIZUMAB
     Indication: GUTTATE PSORIASIS
     Dosage: INJECT 160MG (2 SYRINGES) SUBCUTANEOUSLY  AT WEEK 0 THEN 80MG (1 SYRINGE) AT  WEEK 2  AS DIRECTED
     Route: 058
     Dates: start: 202004
  2. TALTZ [Suspect]
     Active Substance: IXEKIZUMAB
     Indication: PSORIASIS
     Dosage: INJECT 160MG (2 SYRINGES) SUBCUTANEOUSLY  AT WEEK 0 THEN 80MG (1 SYRINGE) AT  WEEK 2  AS DIRECTED
     Route: 058
     Dates: start: 202004

REACTIONS (1)
  - Urinary tract infection [None]
